FAERS Safety Report 4292254-X (Version None)
Quarter: 2004Q1

REPORT INFORMATION
  Report Type: 
  Country: None (occurrence: None)
  Receive Date: 20040211
  Receipt Date: 20040127
  Transmission Date: 20041129
  Serious: Yes (Death)
  Sender: FDA-Public Use
  Company Number: CA-GLAXOSMITHKLINE-B0321472A

PATIENT
  Age: 68 Year
  Sex: Male

DRUGS (1)
  1. ALBENDAZOLE [Suspect]
     Dosage: 400MG TWICE PER DAY
     Route: 048

REACTIONS (4)
  - KLEBSIELLA BACTERAEMIA [None]
  - OESOPHAGEAL VARICES HAEMORRHAGE [None]
  - PANCYTOPENIA [None]
  - SEPTIC SHOCK [None]
